FAERS Safety Report 5321234-8 (Version None)
Quarter: 2007Q2

REPORT INFORMATION
  Report Type: 
  Country: None (occurrence: None)
  Receive Date: 20070215
  Receipt Date: 20060726
  Transmission Date: 20071010
  Serious: No
  Sender: FDA-Public Use
  Company Number: 200610957BWH

PATIENT
  Age: 62 Year
  Sex: Male

DRUGS (8)
  1. SORAFENIB [Suspect]
     Indication: METASTATIC RENAL CELL CARCINOMA
     Dosage: SEE IMAGE
     Route: 048
     Dates: start: 20051001, end: 20060301
  2. SORAFENIB [Suspect]
     Indication: METASTATIC RENAL CELL CARCINOMA
     Dosage: SEE IMAGE
     Route: 048
     Dates: start: 20060301, end: 20060412
  3. SORAFENIB [Suspect]
     Indication: METASTATIC RENAL CELL CARCINOMA
     Dosage: SEE IMAGE
     Route: 048
     Dates: start: 20060413, end: 20060606
  4. ATENOLOL [Concomitant]
  5. NEXIUM [Concomitant]
  6. LIPITOR [Concomitant]
  7. ALLOPURINOL [Concomitant]
  8. CELEBREX [Concomitant]

REACTIONS (9)
  - BLISTER [None]
  - DIARRHOEA [None]
  - HAIR GROWTH ABNORMAL [None]
  - HYPERKERATOSIS [None]
  - LIP OEDEMA [None]
  - PALMAR-PLANTAR ERYTHRODYSAESTHESIA SYNDROME [None]
  - PARAESTHESIA [None]
  - SKIN BURNING SENSATION [None]
  - SKIN EXFOLIATION [None]
